FAERS Safety Report 24178315 (Version 1)
Quarter: 2024Q3

REPORT INFORMATION
  Report Type: Report from Study
  Country: US (occurrence: US)
  Receive Date: 20240806
  Receipt Date: 20240806
  Transmission Date: 20241016
  Serious: Yes (Hospitalization, Other)
  Sender: INVENTIA HEALTHCARE
  Company Number: US-IHL-000596

PATIENT
  Sex: Male

DRUGS (5)
  1. QUETIAPINE [Suspect]
     Active Substance: QUETIAPINE
     Indication: Foetal exposure during pregnancy
     Route: 015
  2. CLONAZEPAM [Suspect]
     Active Substance: CLONAZEPAM
     Indication: Foetal exposure during pregnancy
     Route: 015
  3. HYDROMORPHONE [Suspect]
     Active Substance: HYDROMORPHONE
     Indication: Foetal exposure during pregnancy
     Route: 015
  4. FLUOXETINE HYDROCHLORIDE [Suspect]
     Active Substance: FLUOXETINE HYDROCHLORIDE
     Indication: Foetal exposure during pregnancy
     Route: 015
  5. OXYCODONE [Suspect]
     Active Substance: OXYCODONE

REACTIONS (5)
  - Decerebrate posture [Unknown]
  - Drug withdrawal syndrome neonatal [Unknown]
  - Hypertonia neonatal [Unknown]
  - Premature baby [Unknown]
  - Foetal exposure during pregnancy [Unknown]
